FAERS Safety Report 9788880 (Version 2)
Quarter: 2014Q1

REPORT INFORMATION
  Report Type: Spontaneous
  Country: ES (occurrence: ES)
  Receive Date: 20131230
  Receipt Date: 20140123
  Transmission Date: 20141002
  Serious: Yes (Other)
  Sender: FDA-Public Use
  Company Number: ES-GLAXOSMITHKLINE-B0955014A

PATIENT
  Age: 30 Year
  Sex: Female

DRUGS (2)
  1. MALARONE [Suspect]
     Indication: MALARIA PROPHYLAXIS
     Route: 065
     Dates: start: 20131108, end: 20131120
  2. PROGEFFIK [Concomitant]
     Dates: end: 201310

REACTIONS (4)
  - Malaria [Not Recovered/Not Resolved]
  - Blood prolactin increased [Recovered/Resolved]
  - Drug ineffective [Unknown]
  - Dysmenorrhoea [Unknown]
